FAERS Safety Report 20414386 (Version 1)
Quarter: 2022Q1

REPORT INFORMATION
  Report Type: Spontaneous
  Country: US (occurrence: US)
  Receive Date: 20220202
  Receipt Date: 20220202
  Transmission Date: 20220423
  Serious: Yes (Hospitalization)
  Sender: FDA-Public Use
  Company Number: US-NOVOPROD-887462

PATIENT
  Age: 57 Year
  Sex: Female

DRUGS (3)
  1. OZEMPIC [Suspect]
     Active Substance: SEMAGLUTIDE
     Dosage: 0.5 MG, QW
     Route: 058
     Dates: start: 2021, end: 202111
  2. OZEMPIC [Suspect]
     Active Substance: SEMAGLUTIDE
     Indication: Weight decreased
     Dosage: 0.25 MG, QW
     Route: 058
     Dates: start: 2021, end: 2021
  3. OZEMPIC [Suspect]
     Active Substance: SEMAGLUTIDE
     Dosage: 0.5 MG, BIW
     Route: 058
     Dates: start: 202111, end: 202112

REACTIONS (7)
  - Large intestine perforation [Not Recovered/Not Resolved]
  - Gait inability [Not Recovered/Not Resolved]
  - Feeding disorder [Unknown]
  - Mental disorder [Unknown]
  - Insomnia [Unknown]
  - Intentional product misuse [Recovered/Resolved]
  - Product use in unapproved indication [Recovered/Resolved]

NARRATIVE: CASE EVENT DATE: 20210101
